FAERS Safety Report 15545742 (Version 1)
Quarter: 2018Q4

REPORT INFORMATION
  Report Type: Spontaneous
  Country: US (occurrence: US)
  Receive Date: 20181023
  Receipt Date: 20181023
  Transmission Date: 20190205
  Serious: No
  Sender: FDA-Public Use
  Company Number: None

PATIENT
  Age: 32 Year
  Sex: Female

DRUGS (4)
  1. XYZAL [Suspect]
     Active Substance: LEVOCETIRIZINE DIHYDROCHLORIDE
     Indication: SEASONAL ALLERGY
     Dosage: ?          QUANTITY:1 TABLET(S);?
     Route: 048
     Dates: start: 20181004, end: 20181011
  2. NATURE MADE SUPER B ENERGY COMPLEX SOFT GEL [Concomitant]
  3. NORDIC NATURALS ULTIMATE OMEGA (FISH OIL) [Concomitant]
  4. FLONASE [Concomitant]
     Active Substance: FLUTICASONE PROPIONATE

REACTIONS (5)
  - Abnormal dreams [None]
  - Visual impairment [None]
  - Nightmare [None]
  - Dizziness [None]
  - Fatigue [None]
